FAERS Safety Report 15203673 (Version 1)
Quarter: 2018Q3

REPORT INFORMATION
  Report Type: Spontaneous
  Country: US (occurrence: US)
  Receive Date: 20180726
  Receipt Date: 20180726
  Transmission Date: 20181010
  Serious: Yes (Hospitalization)
  Sender: FDA-Public Use
  Company Number: US-VERTEX PHARMACEUTICALS-2018-004620

PATIENT
  Sex: Female
  Weight: 43 kg

DRUGS (10)
  1. VITAMIN E                          /00110501/ [Concomitant]
     Active Substance: TOCOPHEROL
     Dosage: 100 INTERNATIONAL UNIT
  2. ALBUTEROL SULFATE. [Concomitant]
     Active Substance: ALBUTEROL SULFATE
     Dosage: UNK
  3. ORKAMBI [Suspect]
     Active Substance: IVACAFTOR\LUMACAFTOR
     Indication: CYSTIC FIBROSIS
     Dosage: 100/125 MG, BID
     Route: 048
     Dates: start: 20180412
  4. CREON [Concomitant]
     Active Substance: PANCRELIPASE AMYLASE\PANCRELIPASE LIPASE\PANCRELIPASE PROTEASE
     Dosage: UNK
  5. CLARITIN [Concomitant]
     Active Substance: LORATADINE
     Dosage: UNK
  6. VITAMIN K [Concomitant]
     Active Substance: PHYTONADIONE
     Dosage: UNK
  7. ALBUTEROL POWDER [Concomitant]
  8. HYPERSAL [Concomitant]
     Dosage: UNK
  9. VANCOMYCIN [Concomitant]
     Active Substance: VANCOMYCIN
     Dosage: 250 MG
  10. PULMOZYME [Concomitant]
     Active Substance: DORNASE ALFA
     Dosage: 2.5 MILLILITER, QD
     Route: 055

REACTIONS (2)
  - Hospitalisation [Not Recovered/Not Resolved]
  - Pharyngitis [Not Recovered/Not Resolved]

NARRATIVE: CASE EVENT DATE: 2018
